FAERS Safety Report 14246558 (Version 1)
Quarter: 2017Q4

REPORT INFORMATION
  Report Type: Spontaneous
  Country: US (occurrence: US)
  Receive Date: 20171201
  Receipt Date: 20171201
  Transmission Date: 20180321
  Serious: Yes (Other)
  Sender: FDA-Public Use
  Company Number: None

PATIENT
  Age: 46 Year
  Sex: Female
  Weight: 86.3 kg

DRUGS (5)
  1. DIPHENHRAMINE [Concomitant]
  2. METHYLPREDNISOLONE. [Concomitant]
     Active Substance: METHYLPREDNISOLONE
  3. RITUXAN [Suspect]
     Active Substance: RITUXIMAB
     Indication: SJOGREN^S SYNDROME
     Dosage: ?          OTHER FREQUENCY:ONCE;?
     Route: 041
     Dates: start: 20171129, end: 20171129
  4. HYDROCORTISONE. [Concomitant]
     Active Substance: HYDROCORTISONE
  5. FAMOTIDINE. [Concomitant]
     Active Substance: FAMOTIDINE

REACTIONS (4)
  - Rash [None]
  - Infusion related reaction [None]
  - Ear pruritus [None]
  - Pruritus [None]

NARRATIVE: CASE EVENT DATE: 20171129
